FAERS Safety Report 18052643 (Version 2)
Quarter: 2020Q3

REPORT INFORMATION
  Report Type: Spontaneous
  Country: DE (occurrence: DE)
  Receive Date: 20200721
  Receipt Date: 20200729
  Transmission Date: 20201103
  Serious: Yes (Hospitalization, Other)
  Sender: FDA-Public Use
  Company Number: DE-BRISTOL-MYERS SQUIBB COMPANY-BMS-2020-058421

PATIENT
  Age: 72 Year
  Sex: Male
  Weight: 84 kg

DRUGS (1)
  1. NIVOLUMAB [Suspect]
     Active Substance: NIVOLUMAB
     Indication: RENAL CELL CARCINOMA
     Dosage: 240 MILLIGRAM, Q2WK
     Route: 042
     Dates: start: 20200311, end: 20200527

REACTIONS (4)
  - Intervertebral discitis [Recovering/Resolving]
  - Arthritis [Recovering/Resolving]
  - Hyperuricaemia [Unknown]
  - Muscle abscess [Recovering/Resolving]

NARRATIVE: CASE EVENT DATE: 20200506
